FAERS Safety Report 5084246-8 (Version None)
Quarter: 2006Q3

REPORT INFORMATION
  Report Type: 
  Country: None (occurrence: None)
  Receive Date: 20060821
  Receipt Date: 20060420
  Transmission Date: 20061208
  Serious: No
  Sender: FDA-Public Use
  Company Number: US-BRISTOL-MYERS SQUIBB COMPANY-13352059

PATIENT

DRUGS (2)
  1. TEQUIN [Suspect]
     Indication: ARTHRITIS
  2. TEQUIN [Suspect]
     Indication: PAIN

REACTIONS (1)
  - DRUG INEFFECTIVE [None]
